FAERS Safety Report 4723340-5 (Version None)
Quarter: 2005Q3

REPORT INFORMATION
  Report Type: 
  Country: None (occurrence: None)
  Receive Date: 20050719
  Receipt Date: 20050303
  Transmission Date: 20060218
  Serious: Yes (Hospitalization)
  Sender: FDA-Public Use
  Company Number: 2005BI005264

PATIENT
  Age: 34 Year
  Sex: Female
  Weight: 86.1834 kg

DRUGS (4)
  1. AVONEX [Suspect]
     Indication: MULTIPLE SCLEROSIS
     Dosage: 30 UG; QW; IM
     Route: 030
     Dates: start: 20040201
  2. SYNTHROID [Concomitant]
  3. IRON (NOS) [Concomitant]
  4. VITAMIN B-12 [Concomitant]

REACTIONS (4)
  - MULTIPLE SCLEROSIS RELAPSE [None]
  - MUSCLE SPASTICITY [None]
  - PAIN [None]
  - WEIGHT INCREASED [None]
